FAERS Safety Report 21354975 (Version 2)
Quarter: 2022Q4

REPORT INFORMATION
  Report Type: Spontaneous
  Country: JP (occurrence: JP)
  Receive Date: 20220920
  Receipt Date: 20221011
  Transmission Date: 20230113
  Serious: Yes (Hospitalization, Other)
  Sender: FDA-Public Use
  Company Number: JP-BAYER-2022A128677

PATIENT
  Age: 77 Year
  Sex: Male

DRUGS (3)
  1. XOFIGO [Suspect]
     Active Substance: RADIUM RA-223 DICHLORIDE
     Indication: Hormone-refractory prostate cancer
     Dosage: 2.7ML
     Route: 042
     Dates: start: 20220804, end: 20220901
  2. XOFIGO [Suspect]
     Active Substance: RADIUM RA-223 DICHLORIDE
     Indication: Metastases to bone
  3. ESTRAMUSTINE PHOSPHATE MEGLUMINE [Concomitant]
     Active Substance: ESTRAMUSTINE PHOSPHATE MEGLUMINE
     Indication: Prostate cancer

REACTIONS (2)
  - Hormone-refractory prostate cancer [Not Recovered/Not Resolved]
  - Dysuria [None]

NARRATIVE: CASE EVENT DATE: 20220101
